FAERS Safety Report 9301831 (Version 1)
Quarter: 2013Q2

REPORT INFORMATION
  Report Type: Spontaneous
  Country: US (occurrence: US)
  Receive Date: 20130521
  Receipt Date: 20130521
  Transmission Date: 20140414
  Serious: No
  Sender: FDA-Public Use
  Company Number: US-TEVA-353573USA

PATIENT
  Sex: Female
  Weight: 37.23 kg

DRUGS (5)
  1. ACTIQ [Suspect]
     Indication: PAIN
     Route: 002
  2. CIPRO [Concomitant]
  3. FLAGYL [Concomitant]
  4. PENTASA [Concomitant]
  5. 6MP [Concomitant]

REACTIONS (3)
  - Tooth loss [Not Recovered/Not Resolved]
  - Thinking abnormal [Not Recovered/Not Resolved]
  - Off label use [Unknown]
